FAERS Safety Report 5977486-4 (Version None)
Quarter: 2008Q4

REPORT INFORMATION
  Report Type: 
  Country: None (occurrence: None)
  Receive Date: 20081125
  Receipt Date: 20081114
  Transmission Date: 20090506
  Serious: Yes (Hospitalization)
  Sender: FDA-Public Use
  Company Number: 2008S1000287

PATIENT
  Age: 50 Year
  Sex: Male
  Weight: 86.3 kg

DRUGS (6)
  1. CUBICIN [Suspect]
     Indication: DEVICE RELATED INFECTION
     Dosage: 5.79 MG/KG; Q24H; IV
     Route: 042
     Dates: start: 20080523, end: 20080527
  2. CUBICIN [Suspect]
     Indication: OSTEOMYELITIS
     Dosage: 5.79 MG/KG; Q24H; IV
     Route: 042
     Dates: start: 20080523, end: 20080527
  3. LISINOPRIL [Concomitant]
  4. CALCIUM [Concomitant]
  5. MULTI-VITAMINS [Concomitant]
  6. CIPROFLOXACIN [Concomitant]

REACTIONS (4)
  - BACTERIAL CULTURE POSITIVE [None]
  - DEEP VEIN THROMBOSIS [None]
  - PSEUDOMONAS INFECTION [None]
  - WALKING AID USER [None]
